FAERS Safety Report 7079819-7 (Version None)
Quarter: 2010Q4

REPORT INFORMATION
  Report Type: 
  Country: None (occurrence: None)
  Receive Date: 20101102
  Receipt Date: 20101029
  Transmission Date: 20110411
  Serious: Yes (Hospitalization)
  Sender: FDA-Public Use
  Company Number: JP-EISAI INC.-E2020-06759-SPO-JP

PATIENT
  Sex: Female
  Weight: 45 kg

DRUGS (3)
  1. ARICEPT [Suspect]
     Indication: DEMENTIA ALZHEIMER'S TYPE
     Route: 048
     Dates: start: 20090828, end: 20100428
  2. ARICEPT [Suspect]
     Route: 048
     Dates: start: 20100429, end: 20100505
  3. PAXIL [Concomitant]
     Indication: DEPRESSION
     Route: 048
     Dates: start: 20091222, end: 20100511

REACTIONS (1)
  - LARGE INTESTINAL ULCER [None]
